FAERS Safety Report 23332050 (Version 1)
Quarter: 2023Q4

REPORT INFORMATION
  Report Type: Spontaneous
  Country: IN (occurrence: IN)
  Receive Date: 20231222
  Receipt Date: 20231222
  Transmission Date: 20240110
  Serious: Yes (Hospitalization)
  Sender: FDA-Public Use
  Company Number: IN-MEDEXUS PHARMA, INC.-2023MED00541

PATIENT
  Age: 52 Year
  Sex: Male

DRUGS (2)
  1. METHOTREXATE [Suspect]
     Active Substance: METHOTREXATE
     Indication: Pruritus
     Dosage: 15 ?G, 1X/WEEK
  2. METHOTREXATE [Suspect]
     Active Substance: METHOTREXATE
     Indication: Skin exfoliation
     Dosage: 15 ?G, 1X/DAY

REACTIONS (3)
  - Leukoerythroblastosis [Recovered/Resolved]
  - Mucosal inflammation [Recovered/Resolved]
  - Overdose [Recovered/Resolved]
